FAERS Safety Report 23222788 (Version 3)
Quarter: 2024Q1

REPORT INFORMATION
  Report Type: Spontaneous
  Country: US (occurrence: US)
  Receive Date: 20231123
  Receipt Date: 20240205
  Transmission Date: 20240409
  Serious: Yes (Hospitalization)
  Sender: FDA-Public Use
  Company Number: US-BIOVITRUM-2023-US-018241

PATIENT
  Age: 3 Month
  Sex: Female

DRUGS (2)
  1. SYNAGIS [Suspect]
     Active Substance: PALIVIZUMAB
     Indication: Premature baby
     Dosage: EVERY 28DAYS -30DAYS
     Route: 030
     Dates: start: 20230810, end: 202311
  2. SYNAGIS [Suspect]
     Active Substance: PALIVIZUMAB
     Dosage: EVERY 28DAYS -30DAYS
     Route: 030
     Dates: start: 20230810

REACTIONS (4)
  - Influenza [Unknown]
  - Respiratory tract congestion [Recovering/Resolving]
  - Cough [Recovering/Resolving]
  - Rhinorrhoea [Recovering/Resolving]

NARRATIVE: CASE EVENT DATE: 20240120
